FAERS Safety Report 4310069-0 (Version None)
Quarter: 2004Q1

REPORT INFORMATION
  Report Type: 
  Country: None (occurrence: None)
  Receive Date: 20040301
  Receipt Date: 20031106
  Transmission Date: 20041129
  Serious: No
  Sender: FDA-Public Use
  Company Number: WAES0308USA02524

PATIENT
  Age: 71 Year
  Sex: Female

DRUGS (6)
  1. ZETIA [Suspect]
     Indication: BLOOD CHOLESTEROL INCREASED
     Dosage: 10 MG/DAILY/PO
     Route: 048
     Dates: start: 20030401
  2. ACIPHEX [Concomitant]
  3. ALLEGRA [Concomitant]
  4. EVISTA [Concomitant]
  5. HYDRODIURIL [Concomitant]
  6. PROCARDIA [Concomitant]

REACTIONS (2)
  - DRY MOUTH [None]
  - FATIGUE [None]
